FAERS Safety Report 7747477-1 (Version None)
Quarter: 2011Q3

REPORT INFORMATION
  Report Type: 
  Country: None (occurrence: None)
  Receive Date: 20110913
  Receipt Date: 20110912
  Transmission Date: 20111222
  Serious: Yes (Death, Life-Threatening, Other)
  Sender: FDA-Public Use
  Company Number: JP-PFIZER INC-2011181415

PATIENT
  Age: 58 Year
  Sex: Male

DRUGS (8)
  1. VFEND [Suspect]
     Indication: ASPERGILLOSIS
     Dosage: 6 MG/KG, 2X/DAY
     Route: 041
     Dates: start: 20110729, end: 20110729
  2. SELEGILINE HYDROCHLORIDE [Concomitant]
  3. VFEND [Suspect]
     Dosage: 4 MG/KG, 2X/DAY
     Route: 041
     Dates: start: 20110730, end: 20110806
  4. MADOPAR [Concomitant]
  5. REQUIP [Concomitant]
  6. BLADDERON [Concomitant]
  7. DOPS [Concomitant]
  8. COMTAN [Concomitant]

REACTIONS (2)
  - ALTERED STATE OF CONSCIOUSNESS [None]
  - HYPOGLYCAEMIA [None]
